FAERS Safety Report 5812658-0 (Version None)
Quarter: 2008Q3

REPORT INFORMATION
  Report Type: 
  Country: None (occurrence: None)
  Receive Date: 20080711
  Receipt Date: 20070815
  Transmission Date: 20090109
  Serious: Yes (Congenital Anomaly)
  Sender: FDA-Public Use
  Company Number: WAES 0708USA05873

PATIENT
  Age: 31 Year
  Sex: Female

DRUGS (4)
  1. CRIXIVAN [Suspect]
     Indication: HIV INFECTION
     Dates: start: 19980411
  2. ANTIMICROBIAL (UNSPECIFIED) [Concomitant]
  3. LAMIVUDINE [Concomitant]
  4. ZIDOVUDINE [Concomitant]

REACTIONS (8)
  - CONGENITAL CARDIOVASCULAR ANOMALY [None]
  - CONGENITAL TRICUSPID VALVE ATRESIA [None]
  - CONGENITAL TRICUSPID VALVE STENOSIS [None]
  - HYPOPLASTIC RIGHT HEART SYNDROME [None]
  - MATERNAL DRUGS AFFECTING FOETUS [None]
  - PREMATURE BABY [None]
  - SMALL FOR DATES BABY [None]
  - VENTRICULAR SEPTAL DEFECT [None]
